FAERS Safety Report 14371360 (Version 1)
Quarter: 2018Q1

REPORT INFORMATION
  Report Type: Spontaneous
  Country: US (occurrence: US)
  Receive Date: 20180109
  Receipt Date: 20180109
  Transmission Date: 20180509
  Serious: Yes (Life-Threatening, Hospitalization)
  Sender: FDA-Public Use
  Company Number: None

PATIENT
  Age: 68 Year
  Sex: Male
  Weight: 55.3 kg

DRUGS (1)
  1. VANCOMYCIN [Suspect]
     Active Substance: VANCOMYCIN
     Indication: BACTERAEMIA
     Route: 042
     Dates: start: 20171209, end: 20171209

REACTIONS (5)
  - Anaphylactic reaction [None]
  - Hypertension [None]
  - Angioedema [None]
  - Pyrexia [None]
  - Tachycardia [None]

NARRATIVE: CASE EVENT DATE: 20171209
